FAERS Safety Report 4284553-2 (Version None)
Quarter: 2004Q1

REPORT INFORMATION
  Report Type: 
  Country: None (occurrence: None)
  Receive Date: 20040130
  Receipt Date: 20040117
  Transmission Date: 20041129
  Serious: Yes (Other)
  Sender: FDA-Public Use
  Company Number: 2004005279

PATIENT
  Age: 76 Year
  Sex: Female
  Weight: 36 kg

DRUGS (5)
  1. AMLODIPINE [Suspect]
     Indication: HYPERTENSION
     Dosage: 10 MG (DAILY), ORAL
     Route: 048
  2. ISOSORBIDE MONONITRATE [Suspect]
     Indication: HYPERTENSION
     Dosage: 20 MG (BID), ORAL
     Route: 048
  3. LORAZEPAM [Suspect]
     Indication: HYPERTENSION
     Dosage: (BID), ORAL
     Route: 048
  4. PANTOPRAZOLE (PANTOPRAZOLE) [Suspect]
     Indication: HYPERTENSION
     Dosage: 20 MG (DAILY), UNKNOWN
     Route: 065
  5. CEFUROXIME AXETIL (CEFUROXIME AXETIL) [Concomitant]

REACTIONS (7)
  - BLOOD PRESSURE SYSTOLIC INCREASED [None]
  - CARDIAC FAILURE CONGESTIVE [None]
  - DYSPNOEA [None]
  - HEART RATE INCREASED [None]
  - LUNG CREPITATION [None]
  - PYREXIA [None]
  - VENTRICULAR HYPERTROPHY [None]
